FAERS Safety Report 10347882 (Version 1)
Quarter: 2014Q3

REPORT INFORMATION
  Report Type: Spontaneous
  Country: US (occurrence: None)
  Receive Date: 20140725
  Receipt Date: 20140725
  Transmission Date: 20150326
  Serious: Yes (Disabling)
  Sender: FDA-Public Use
  Company Number: UNT-2014-003733

PATIENT
  Age: 71 Year
  Sex: Female
  Weight: 118.8 kg

DRUGS (2)
  1. ADCIRCA [Concomitant]
     Active Substance: TADALAFIL
  2. REMODULIN [Suspect]
     Active Substance: TREPROSTINIL
     Indication: PULMONARY ARTERIAL HYPERTENSION
     Route: 058
     Dates: start: 20140407, end: 20140703

REACTIONS (1)
  - Disease progression [None]

NARRATIVE: CASE EVENT DATE: 20140703
